FAERS Safety Report 6398679-0 (Version None)
Quarter: 2009Q4

REPORT INFORMATION
  Report Type: 
  Country: None (occurrence: None)
  Receive Date: 20091013
  Receipt Date: 20091002
  Transmission Date: 20100525
  Serious: Yes (Hospitalization)
  Sender: FDA-Public Use
  Company Number: JP-AVENTIS-200912735JP

PATIENT
  Age: 65 Year
  Sex: Female

DRUGS (2)
  1. ALLEGRA [Suspect]
     Route: 048
     Dates: start: 20070901, end: 20071001
  2. UNKNOWN DRUG [Suspect]

REACTIONS (1)
  - LIVER DISORDER [None]
